FAERS Safety Report 5529233-8 (Version None)
Quarter: 2007Q4

REPORT INFORMATION
  Report Type: 
  Country: None (occurrence: None)
  Receive Date: 20071129
  Receipt Date: 20070723
  Transmission Date: 20080405
  Serious: No
  Sender: FDA-Public Use
  Company Number: A0666595A

PATIENT

DRUGS (1)
  1. WELLBUTRIN SR [Suspect]
     Indication: DRUG USE FOR UNKNOWN INDICATION
     Dosage: 100MG UNKNOWN

REACTIONS (2)
  - ANXIETY [None]
  - BLOOD PRESSURE INCREASED [None]
